FAERS Safety Report 8658218 (Version 2)
Quarter: 2013Q2

REPORT INFORMATION
  Report Type: Spontaneous
  Country: JP (occurrence: JP)
  Receive Date: 20120710
  Receipt Date: 20130603
  Transmission Date: 20140414
  Serious: Yes (Hospitalization, Other)
  Sender: FDA-Public Use
  Company Number: JP-GLAXOSMITHKLINE-B0805737A

PATIENT
  Age: 84 Year
  Sex: Female
  Weight: 68 kg

DRUGS (5)
  1. VALTREX [Suspect]
     Indication: HERPES ZOSTER
     Dosage: 1000MG THREE TIMES PER DAY
     Route: 048
     Dates: start: 20120526, end: 20120531
  2. LOXONIN [Suspect]
     Indication: HERPES ZOSTER
     Dosage: 60MG THREE TIMES PER DAY
     Route: 048
     Dates: start: 20120526, end: 20120531
  3. PERDIPINE LA [Concomitant]
     Indication: HYPERTENSION
     Dosage: 40MG TWICE PER DAY
     Route: 048
     Dates: end: 20120531
  4. GASTER D [Concomitant]
     Dosage: 10MG PER DAY
     Route: 048
     Dates: end: 20120531
  5. LIVALO [Concomitant]
     Dosage: 1MG PER DAY
     Route: 048
     Dates: end: 20120531

REACTIONS (7)
  - Altered state of consciousness [Recovered/Resolved]
  - Renal failure acute [Recovering/Resolving]
  - Renal impairment [Recovering/Resolving]
  - Overdose [Unknown]
  - Renal disorder [Unknown]
  - Drug level increased [Unknown]
  - Toxicity to various agents [Unknown]
